FAERS Safety Report 6635616-5 (Version None)
Quarter: 2010Q1

REPORT INFORMATION
  Report Type: 
  Country: None (occurrence: None)
  Receive Date: 20100312
  Receipt Date: 20100312
  Transmission Date: 20100710
  Serious: Yes (Disabling)
  Sender: FDA-Public Use
  Company Number: None

PATIENT
  Sex: Female
  Weight: 115.6672 kg

DRUGS (1)
  1. ACCUTANE [Suspect]
     Indication: ACNE
     Dosage: 80 MG. EVENING ORAL PILL 047 60 MG. MORNING ORAL PILL 047
     Route: 048
     Dates: start: 20091001, end: 20100101

REACTIONS (2)
  - HYPERACUSIS [None]
  - TINNITUS [None]
